FAERS Safety Report 9788655 (Version 2)
Quarter: 2013Q4

REPORT INFORMATION
  Report Type: Spontaneous
  Country: JP (occurrence: JP)
  Receive Date: 20131230
  Receipt Date: 20131230
  Transmission Date: 20140711
  Serious: Yes (Hospitalization)
  Sender: FDA-Public Use
  Company Number: JP-B.I. PHARMACEUTICALS,INC./RIDGEFIELD-2013-BI-34983NB

PATIENT
  Age: 77 Year
  Sex: Male
  Weight: 72.3 kg

DRUGS (2)
  1. MICARDIS [Suspect]
     Indication: HYPERTENSION
     Dosage: 20 MG
     Route: 048
     Dates: start: 20111226, end: 20130830
  2. MAINTATE / BISOPROLOL FUMARATE [Concomitant]
     Route: 048
     Dates: start: 20040419

REACTIONS (1)
  - Pharyngeal oedema [Recovered/Resolved]
